FAERS Safety Report 9831772 (Version 7)
Quarter: 2014Q2

REPORT INFORMATION
  Report Type: Spontaneous
  Country: US (occurrence: US)
  Receive Date: 20140121
  Receipt Date: 20140515
  Transmission Date: 20141212
  Serious: Yes (Other)
  Sender: FDA-Public Use
  Company Number: US-PFIZER INC-2014014114

PATIENT
  Age: 58 Year
  Sex: Male
  Weight: 90.25 kg

DRUGS (12)
  1. SUTENT [Suspect]
     Indication: RENAL CELL CARCINOMA STAGE IV
     Dosage: 50 MG, CYCLIC
     Dates: start: 20140112, end: 20140130
  2. SUTENT [Suspect]
     Dosage: 37.5 MG, CYCLIC, 4 WEEKS ON AND 2 WEEKS OFF
     Dates: start: 20140311
  3. SUTENT [Suspect]
     Dosage: 37.5 MG, CYCLIC, 2 WEEKS ON AND 1 WEEK OFF
     Dates: start: 20140411, end: 20140422
  4. HYDROMORPHONE [Concomitant]
     Dosage: UNK
  5. OMEPRAZOLE [Concomitant]
     Dosage: UNK
  6. PROZAC [Concomitant]
     Dosage: UNK
  7. SIMVASTATIN [Concomitant]
     Dosage: UNK
  8. LISINOPRIL [Concomitant]
     Dosage: UNK
  9. FENTANYL [Concomitant]
     Dosage: UNK
     Route: 062
  10. RISPERDAL [Concomitant]
     Dosage: UNK
  11. DEXAMETHASONE [Concomitant]
     Dosage: UNK
  12. ZOFRAN [Concomitant]
     Dosage: UNK

REACTIONS (14)
  - Weight decreased [Unknown]
  - Confusional state [Recovered/Resolved]
  - Abdominal discomfort [Recovered/Resolved]
  - Hypophagia [Recovered/Resolved]
  - Asthenia [Recovered/Resolved]
  - Fall [Recovered/Resolved]
  - Dyspnoea [Recovered/Resolved]
  - Headache [Recovered/Resolved]
  - Hallucination [Recovered/Resolved]
  - Dyskinesia [Recovered/Resolved]
  - Laboratory test abnormal [Recovered/Resolved]
  - Dehydration [Recovered/Resolved]
  - Diarrhoea [Not Recovered/Not Resolved]
  - Decreased appetite [Unknown]
